FAERS Safety Report 6512175-9 (Version None)
Quarter: 2009Q4

REPORT INFORMATION
  Report Type: 
  Country: None (occurrence: None)
  Receive Date: 20091222
  Receipt Date: 20091214
  Transmission Date: 20100525
  Serious: Yes (Hospitalization, Other)
  Sender: FDA-Public Use
  Company Number: US-AMGEN-QUU380196

PATIENT
  Sex: Male

DRUGS (2)
  1. ENBREL [Suspect]
     Indication: PSORIATIC ARTHROPATHY
     Route: 058
  2. UNSPECIFIED DIURETIC [Concomitant]

REACTIONS (9)
  - BLOOD POTASSIUM DECREASED [None]
  - DYSPNOEA [None]
  - FLUID OVERLOAD [None]
  - GAIT DISTURBANCE [None]
  - HEPATIC FAILURE [None]
  - MENTAL STATUS CHANGES [None]
  - PNEUMONITIS [None]
  - RENAL FAILURE [None]
  - SWELLING [None]
